FAERS Safety Report 13227900 (Version 2)
Quarter: 2017Q2

REPORT INFORMATION
  Report Type: Report from Study
  Country: US (occurrence: US)
  Receive Date: 20170213
  Receipt Date: 20170524
  Transmission Date: 20170830
  Serious: Yes (Other)
  Sender: FDA-Public Use
  Company Number: US-TEVA-738780USA

PATIENT
  Age: 11 Year
  Sex: Male

DRUGS (3)
  1. CLOZAPINE. [Suspect]
     Active Substance: CLOZAPINE
     Route: 048
  2. CONCERTA [Concomitant]
     Active Substance: METHYLPHENIDATE HYDROCHLORIDE
     Dosage: 72 MILLIGRAM DAILY;
  3. LAMICTAL [Concomitant]
     Active Substance: LAMOTRIGINE
     Dosage: QHS

REACTIONS (1)
  - Granulocytopenia [Recovered/Resolved with Sequelae]

NARRATIVE: CASE EVENT DATE: 20170202
